FAERS Safety Report 11288671 (Version 4)
Quarter: 2019Q3

REPORT INFORMATION
  Report Type: Report from Study
  Country: US (occurrence: US)
  Receive Date: 20150721
  Receipt Date: 20190916
  Transmission Date: 20191004
  Serious: Yes (Hospitalization, Other)
  Sender: FDA-Public Use
  Company Number: US-SA-2014SA016277

PATIENT
  Age: 55 Year
  Sex: Female

DRUGS (5)
  1. TERIFLUNOMIDE. [Suspect]
     Active Substance: TERIFLUNOMIDE
     Indication: MULTIPLE SCLEROSIS
     Dosage: 14 MG,QD
     Route: 048
     Dates: start: 20140101, end: 20190805
  2. CANNABINOL [Concomitant]
     Active Substance: CANNABINOL
     Dosage: UNK
  3. KLONOPIN [Concomitant]
     Active Substance: CLONAZEPAM
     Dosage: UNK UNK,BID
  4. ABILIFY [Concomitant]
     Active Substance: ARIPIPRAZOLE
     Dosage: 5 MG,QD
  5. MARIJUANA [Concomitant]
     Active Substance: CANNABIS SATIVA SUBSP. INDICA TOP
     Dosage: UNK UNK,QD

REACTIONS (35)
  - Fall [Unknown]
  - Cough [Unknown]
  - Tooth fracture [Unknown]
  - Drug screen negative [Unknown]
  - Face injury [Unknown]
  - Areflexia [Unknown]
  - Haemorrhage urinary tract [Recovering/Resolving]
  - Bronchitis [Unknown]
  - Rhinorrhoea [Unknown]
  - Dehydration [Unknown]
  - Cataract [Not Recovered/Not Resolved]
  - Restless legs syndrome [Unknown]
  - Skin discolouration [Unknown]
  - Balance disorder [Not Recovered/Not Resolved]
  - Pain in extremity [Recovered/Resolved]
  - Urinary tract infection [Unknown]
  - Multiple sclerosis relapse [Unknown]
  - Gait disturbance [Unknown]
  - Incontinence [Unknown]
  - Asthenia [Not Recovered/Not Resolved]
  - Weight decreased [Unknown]
  - Drug ineffective [Unknown]
  - Oropharyngeal pain [Unknown]
  - Failure to thrive [Unknown]
  - Gait disturbance [Not Recovered/Not Resolved]
  - Bladder disorder [Unknown]
  - Urinary retention [Unknown]
  - Migraine [Unknown]
  - Crying [Recovered/Resolved]
  - Feeling abnormal [Not Recovered/Not Resolved]
  - Cystitis [Recovering/Resolving]
  - Balance disorder [Unknown]
  - Myoclonus [Recovered/Resolved]
  - Affect lability [Recovered/Resolved]
  - Contusion [Unknown]

NARRATIVE: CASE EVENT DATE: 201311
